FAERS Safety Report 11892150 (Version 2)
Quarter: 2016Q1

REPORT INFORMATION
  Report Type: Spontaneous
  Country: US (occurrence: US)
  Receive Date: 20160106
  Receipt Date: 20160204
  Transmission Date: 20160526
  Serious: Yes (Hospitalization)
  Sender: FDA-Public Use
  Company Number: US-ASTRAZENECA-2016SE00626

PATIENT
  Age: 803 Month
  Sex: Female

DRUGS (45)
  1. AMLODIPINE [Concomitant]
     Active Substance: AMLODIPINE BESYLATE
     Route: 048
  2. COMBIGAN [Concomitant]
     Active Substance: BRIMONIDINE TARTRATE\TIMOLOL MALEATE
     Dosage: 0.2%-0.5% DROPS, ONE DROP INTO THE EYES EVERY 12 HOURS
  3. ACETAMINOPHEN. [Concomitant]
     Active Substance: ACETAMINOPHEN
     Route: 048
     Dates: start: 20151215
  4. DOXEPIN [Concomitant]
     Active Substance: DOXEPIN
     Route: 048
  5. LASIX [Concomitant]
     Active Substance: FUROSEMIDE
     Route: 048
  6. LUMIGAN [Concomitant]
     Active Substance: BIMATOPROST
     Dosage: 0.01% DROPS, 1 DROP IN TO THE EYES EVERY EVENING
  7. XARELTO [Concomitant]
     Active Substance: RIVAROXABAN
     Route: 048
  8. ISOSORBIDE MONONITRATE. [Concomitant]
     Active Substance: ISOSORBIDE MONONITRATE
     Route: 048
     Dates: start: 20151204
  9. MELOXICAM. [Concomitant]
     Active Substance: MELOXICAM
     Route: 048
  10. MORPHINE [Concomitant]
     Active Substance: MORPHINE
     Route: 048
  11. BRILINTA [Suspect]
     Active Substance: TICAGRELOR
     Indication: ACUTE CORONARY SYNDROME
     Route: 048
     Dates: start: 20151216
  12. NYSTATIN. [Concomitant]
     Active Substance: NYSTATIN
     Route: 048
  13. PERCOCET [Concomitant]
     Active Substance: ACETAMINOPHEN\OXYCODONE HYDROCHLORIDE
     Indication: PAIN
     Dosage: 5 MG-325 MG, 1-2 TABLETS EVERY 6 HOURS PRN
     Route: 048
  14. RESTASIS [Concomitant]
     Active Substance: CYCLOSPORINE
     Dosage: 0.05%, 1 DROP IN TO THE EYES EVERY 12 HOURS PRN
     Dates: start: 20151202
  15. ZOLPIDEM [Concomitant]
     Active Substance: ZOLPIDEM\ZOLPIDEM TARTRATE
     Route: 048
  16. BRIMONIDINE [Concomitant]
     Active Substance: BRIMONIDINE TARTRATE
     Route: 047
  17. LORAZEPAM. [Concomitant]
     Active Substance: LORAZEPAM
     Route: 048
  18. ATIVAN [Concomitant]
     Active Substance: LORAZEPAM
     Indication: ANXIETY
     Dosage: 1 MG THREE TIMES PER DAY PRN
  19. CITALOPRAM [Concomitant]
     Active Substance: CITALOPRAM HYDROBROMIDE
     Route: 048
  20. ASPIRIN. [Concomitant]
     Active Substance: ASPIRIN
     Route: 048
  21. CRESTOR [Concomitant]
     Active Substance: ROSUVASTATIN CALCIUM
     Route: 048
  22. BIMATOPROST. [Concomitant]
     Active Substance: BIMATOPROST
     Route: 047
  23. OXYCODONE/ACETAMINOPHEN [Concomitant]
     Active Substance: ACETAMINOPHEN\OXYCODONE HYDROCHLORIDE
     Route: 048
  24. TIMOLOL. [Concomitant]
     Active Substance: TIMOLOL
     Route: 048
  25. GABAPENTIN. [Concomitant]
     Active Substance: GABAPENTIN
     Route: 048
  26. TOPROL XL [Concomitant]
     Active Substance: METOPROLOL SUCCINATE
  27. ATORVASTATIN [Concomitant]
     Active Substance: ATORVASTATIN
     Route: 048
  28. BRIMONIDINE/TIMOLOL [Concomitant]
     Route: 047
  29. QUETIAPINE [Concomitant]
     Active Substance: QUETIAPINE
     Route: 048
     Dates: start: 20151210
  30. METOPROLOL TARTRATE. [Concomitant]
     Active Substance: METOPROLOL TARTRATE
     Route: 048
  31. NICODERM CQ [Concomitant]
     Active Substance: NICOTINE
     Dosage: CQ21/24 HR PATCH, 1ATCH TRANSDERMALLY  EVERY 24 HOURS
     Route: 062
  32. FUROSEMIDE. [Concomitant]
     Active Substance: FUROSEMIDE
     Route: 048
  33. HYDROCODONE/ACETAMINOPHEN [Concomitant]
     Active Substance: ACETAMINOPHEN\HYDROCODONE
     Route: 048
  34. NEXIUM [Concomitant]
     Active Substance: ESOMEPRAZOLE MAGNESIUM
     Route: 048
  35. POTASSIUM CHLORIDE. [Concomitant]
     Active Substance: POTASSIUM CHLORIDE
     Route: 048
  36. NORCO [Concomitant]
     Active Substance: ACETAMINOPHEN\HYDROCODONE BITARTRATE
     Dosage: 5 MG-325 MG, 1 TABLET EVERY 4 HOURS PRN PAIN
     Route: 048
  37. LAMOTRIGINE. [Concomitant]
     Active Substance: LAMOTRIGINE
     Route: 048
     Dates: start: 20151210
  38. SIMETHICONE (DIMETHICONE) [Concomitant]
     Active Substance: DIMETHICONE
     Dosage: CHEW 125 MG ORAL THREE TIMES A DAY
     Route: 048
     Dates: start: 20151203
  39. CYCLOSPORINE. [Concomitant]
     Active Substance: CYCLOSPORINE
     Route: 047
  40. FOLIC ACID. [Concomitant]
     Active Substance: FOLIC ACID
     Route: 048
  41. LASIX [Concomitant]
     Active Substance: FUROSEMIDE
     Route: 048
  42. DIFENOXIN/ATROPINE [Concomitant]
     Route: 048
  43. LATANOPROST. [Concomitant]
     Active Substance: LATANOPROST
     Route: 047
     Dates: start: 20151203
  44. NITROGLYCERIN. [Concomitant]
     Active Substance: NITROGLYCERIN
     Route: 048
  45. NICOTINE. [Concomitant]
     Active Substance: NICOTINE
     Route: 062

REACTIONS (1)
  - Cardiac disorder [Unknown]

NARRATIVE: CASE EVENT DATE: 201512
